FAERS Safety Report 4970160-2 (Version None)
Quarter: 2006Q2

REPORT INFORMATION
  Report Type: 
  Country: None (occurrence: None)
  Receive Date: 20060406
  Receipt Date: 20060324
  Transmission Date: 20061013
  Serious: Yes (Other)
  Sender: FDA-Public Use
  Company Number: 2006041849

PATIENT
  Age: 61 Year
  Sex: Female
  Weight: 58.9676 kg

DRUGS (3)
  1. LYRICA [Suspect]
     Indication: HEADACHE
     Dosage: 150 MG (50 MG, 3 IN 1 D), ORAL
     Route: 048
     Dates: start: 20060302, end: 20060322
  2. LYRICA [Suspect]
     Indication: NECK PAIN
     Dosage: 150 MG (50 MG, 3 IN 1 D), ORAL
     Route: 048
     Dates: start: 20060302, end: 20060322
  3. LIPITOR [Concomitant]

REACTIONS (9)
  - AMNESIA [None]
  - ASTHENIA [None]
  - CHEST PAIN [None]
  - CONFUSIONAL STATE [None]
  - COORDINATION ABNORMAL [None]
  - DIZZINESS [None]
  - HYPERSOMNIA [None]
  - SOMNOLENCE [None]
  - UNEVALUABLE EVENT [None]
